FAERS Safety Report 23105289 (Version 1)
Quarter: 2023Q4

REPORT INFORMATION
  Report Type: Spontaneous
  Country: US (occurrence: None)
  Receive Date: 20231023
  Receipt Date: 20231023
  Transmission Date: 20240110
  Serious: Yes (Hospitalization)
  Sender: FDA-Public Use
  Company Number: None

PATIENT
  Age: 74 Year
  Sex: Male
  Weight: 75 kg

DRUGS (1)
  1. EZETIMIBE [Suspect]
     Active Substance: EZETIMIBE
     Dosage: FREQUENCY : DAILY;?
     Route: 048
     Dates: start: 20210108, end: 20230203

REACTIONS (1)
  - Fatigue [None]

NARRATIVE: CASE EVENT DATE: 20230203
